FAERS Safety Report 14931729 (Version 5)
Quarter: 2019Q4

REPORT INFORMATION
  Report Type: Report from Study
  Country: US (occurrence: US)
  Receive Date: 20180524
  Receipt Date: 20191230
  Transmission Date: 20200122
  Serious: Yes (Hospitalization, Other)
  Sender: FDA-Public Use
  Company Number: US-ACADIA PHARMACEUTICALS INC.-ACA-2018-007701

PATIENT
  Age: 73 Year
  Sex: Male

DRUGS (10)
  1. XANAX [Concomitant]
     Active Substance: ALPRAZOLAM
  2. CARBIDOPA/LEVODOPA [Concomitant]
     Active Substance: CARBIDOPA\LEVODOPA
  3. RASAGILINE. [Concomitant]
     Active Substance: RASAGILINE
  4. NUPLAZID [Suspect]
     Active Substance: PIMAVANSERIN TARTRATE
     Indication: DELUSION
     Dosage: 34 MG, QD,
     Route: 048
     Dates: start: 2018
  5. VIPRAX DS [Concomitant]
     Dosage: 20 MG, UNK
  6. PROZAC [Concomitant]
     Active Substance: FLUOXETINE HYDROCHLORIDE
  7. NUPLAZID [Suspect]
     Active Substance: PIMAVANSERIN TARTRATE
     Indication: HALLUCINATION
     Dosage: 34 MG, QD
     Route: 048
     Dates: start: 2017
  8. NUPLAZID [Suspect]
     Active Substance: PIMAVANSERIN TARTRATE
     Dosage: 34 MG, QD
     Route: 048
  9. NUPLAZID [Suspect]
     Active Substance: PIMAVANSERIN TARTRATE
     Indication: PARKINSON^S DISEASE PSYCHOSIS
  10. NUPLAZID [Suspect]
     Active Substance: PIMAVANSERIN TARTRATE
     Indication: PARKINSON^S DISEASE
     Dosage: 34 MG, QD
     Route: 048
     Dates: end: 201907

REACTIONS (11)
  - Pneumonia [Unknown]
  - Delusion [Unknown]
  - Skin laceration [Unknown]
  - Hallucination [Not Recovered/Not Resolved]
  - Product dose omission [Unknown]
  - Fall [Unknown]
  - Tongue movement disturbance [Not Recovered/Not Resolved]
  - Dyskinesia [Unknown]
  - Lung perforation [Unknown]
  - Spinal cord injury cervical [Unknown]
  - Hallucination, visual [Unknown]

NARRATIVE: CASE EVENT DATE: 201808
